FAERS Safety Report 9068797 (Version 2)
Quarter: 2013Q1

REPORT INFORMATION
  Report Type: Report from Study
  Country: US (occurrence: US)
  Receive Date: 20130128
  Receipt Date: 20130227
  Transmission Date: 20140127
  Serious: Yes (Death, Hospitalization)
  Sender: FDA-Public Use
  Company Number: US-ACTELION-A-NJ2013-78466

PATIENT
  Age: 80 Year
  Sex: Male

DRUGS (3)
  1. VENTAVIS [Suspect]
     Indication: PULMONARY HYPERTENSION
     Dosage: 5 UNK, 3-9 X DAILY
     Route: 055
     Dates: start: 201001, end: 20130120
  2. LETAIRIS [Suspect]
  3. ASPIRIN [Concomitant]

REACTIONS (2)
  - Respiratory failure [Fatal]
  - Dyspnoea [Unknown]
